FAERS Safety Report 7704042-X (Version None)
Quarter: 2011Q3

REPORT INFORMATION
  Report Type: 
  Country: None (occurrence: None)
  Receive Date: 20110818
  Receipt Date: 20110818
  Transmission Date: 20111222
  Serious: Yes (Life-Threatening)
  Sender: FDA-Public Use
  Company Number: 1000022818

PATIENT
  Age: 69 Year
  Sex: Female

DRUGS (5)
  1. TIORFAN (RACECADOTRIL) (100 MILLIGRAM) [Suspect]
     Indication: DIARRHOEA
     Dosage: 200 MG (100 MG, 2 IN 1 D), ORAL
     Route: 048
     Dates: start: 20110623, end: 20110629
  2. NORFLOXACIN [Suspect]
     Indication: DIARRHOEA
     Dosage: 800 MG (400 MG, 2 IN 1 D), ORAL
     Route: 048
     Dates: start: 20110627, end: 20110704
  3. ARESTAL (LOPERAMIDE OXIDE) (1 MILLIGRAM) [Suspect]
     Indication: DIARRHOEA
     Dosage: 3 MG (2 IN 1 D), ORAL
     Route: 048
     Dates: start: 20110627, end: 20110701
  4. MABTHERA (RITUXIMAB) (100 MILLIGRAM) [Suspect]
     Indication: NON-HODGKIN'S LYMPHOMA STAGE I
     Dosage: 12.5 MG/M2 (375 MG/M2, 1 IN 1 M), INTRAVENOUS (NOT OTHERWISE SPECIFIED)
     Route: 042
     Dates: start: 20100914
  5. FOSFOMYCIN (FOSFOMYCIN TROMETAMOL) (3 GRAM, GRANULATE) [Suspect]
     Indication: URINARY TRACT INFECTION
     Dosage: 3 G (3 GM, ONCE), ORAL
     Route: 048

REACTIONS (6)
  - AGRANULOCYTOSIS [None]
  - MACROCYTOSIS [None]
  - MEAN CELL VOLUME INCREASED [None]
  - THROMBOCYTOPENIA [None]
  - LEUKOPENIA [None]
  - NEUTROPENIA [None]
